FAERS Safety Report 17504883 (Version 1)
Quarter: 2020Q1

REPORT INFORMATION
  Report Type: Spontaneous
  Country: US (occurrence: US)
  Receive Date: 20200305
  Receipt Date: 20200305
  Transmission Date: 20200409
  Serious: No
  Sender: FDA-Public Use
  Company Number: US-BIODELIVERY SCIENCES INTERNATIONAL-2019BDSI1014

PATIENT
  Age: 72 Year
  Sex: Female
  Weight: 83.99 kg

DRUGS (6)
  1. BUPRENORPHINE. [Suspect]
     Active Substance: BUPRENORPHINE
     Indication: PAIN
     Route: 002
     Dates: start: 20191215
  2. LEVOTHYROXINE SODIUM. [Concomitant]
     Active Substance: LEVOTHYROXINE SODIUM
     Indication: THYROID DISORDER
     Dosage: UNKNOWN; UNKNOWN
     Route: 048
  3. SODIUM CHLORIDE. [Concomitant]
     Active Substance: SODIUM CHLORIDE
     Indication: DRY EYE
     Dosage: UNKNOWN; UNKNOWN
     Route: 047
  4. ATENOLOL. [Concomitant]
     Active Substance: ATENOLOL
     Indication: HYPERTENSION
     Dosage: 50 (UNIT UNSPECIFIED); UNKNOWN
  5. PROPYLENE GLYCOL/MACROGOL 400 [Concomitant]
     Indication: DRY EYE
     Dosage: UNKNOWN; UNKNOWN
     Route: 047
  6. PARAFFIN, LIQUID/MINERAL OIL LIGHT [Concomitant]
     Indication: DRY EYE
     Dosage: UNKNOWN; UNKNOWN
     Route: 047

REACTIONS (6)
  - Product solubility abnormal [Unknown]
  - Hypertension [Not Recovered/Not Resolved]
  - Feeling hot [Recovered/Resolved]
  - Dry eye [Not Recovered/Not Resolved]
  - Erythema [Recovered/Resolved]
  - Oral administration complication [Unknown]

NARRATIVE: CASE EVENT DATE: 20191215
